FAERS Safety Report 5292182-7 (Version None)
Quarter: 2007Q2

REPORT INFORMATION
  Report Type: 
  Country: None (occurrence: None)
  Receive Date: 20070410
  Receipt Date: 20070402
  Transmission Date: 20071010
  Serious: Yes (Disabling, Other)
  Sender: FDA-Public Use
  Company Number: US-ELI_LILLY_AND_COMPANY-US200704000406

PATIENT
  Sex: Male
  Weight: 137 kg

DRUGS (1)
  1. HUMALOG [Suspect]
     Dosage: UNK, UNK
     Dates: start: 19990101

REACTIONS (4)
  - ACCIDENT [None]
  - NERVE INJURY [None]
  - VERTEBRAL INJURY [None]
  - WEIGHT INCREASED [None]
